FAERS Safety Report 5062428-9 (Version None)
Quarter: 2006Q3

REPORT INFORMATION
  Report Type: 
  Country: None (occurrence: None)
  Receive Date: 20060721
  Receipt Date: 20060704
  Transmission Date: 20061208
  Serious: Yes (Other)
  Sender: FDA-Public Use
  Company Number: AT200603007012

PATIENT
  Age: 49 Year
  Sex: Male
  Weight: 87 kg

DRUGS (4)
  1. ALIMTA [Suspect]
     Indication: NON-SMALL CELL LUNG CANCER
     Dosage: INTRAVENOUS
     Route: 042
     Dates: start: 20060101, end: 20060208
  2. FORTECORTIN (DEXAMETHASONE) [Concomitant]
  3. FOLIC ACID [Concomitant]
  4. VITAMIN B COMPLEX CAP [Concomitant]

REACTIONS (3)
  - ALANINE AMINOTRANSFERASE INCREASED [None]
  - ASPARTATE AMINOTRANSFERASE INCREASED [None]
  - LIVER DISORDER [None]
